FAERS Safety Report 6646161-5 (Version None)
Quarter: 2010Q1

REPORT INFORMATION
  Report Type: 
  Country: None (occurrence: None)
  Receive Date: 20100323
  Receipt Date: 20100310
  Transmission Date: 20100710
  Serious: Yes (Hospitalization)
  Sender: FDA-Public Use
  Company Number: JP-ROCHE-607715

PATIENT
  Age: 75 Year
  Sex: Male

DRUGS (2)
  1. XELODA [Suspect]
     Indication: COLON CANCER
     Dosage: DRUG: XELODA 300
     Route: 048
     Dates: start: 20081216, end: 20081229
  2. NARTOGRASTIM [Concomitant]
     Dosage: ROUTE: INJECTABLE (NOT OTHERWISE SPECIFIED). DRUG: NEU-UP
     Route: 050

REACTIONS (7)
  - DIARRHOEA [None]
  - MELAENA [None]
  - NECROTISING COLITIS [None]
  - NEUTROPHIL COUNT DECREASED [None]
  - SHOCK HAEMORRHAGIC [None]
  - STOMATITIS [None]
  - WHITE BLOOD CELL COUNT DECREASED [None]
